FAERS Safety Report 6886165-0 (Version None)
Quarter: 2010Q3

REPORT INFORMATION
  Report Type: 
  Country: None (occurrence: None)
  Receive Date: 20100729
  Receipt Date: 20081023
  Transmission Date: 20110219
  Serious: No
  Sender: FDA-Public Use
  Company Number: US-PFIZER INC-2008066826

PATIENT
  Sex: Female
  Weight: 117.03 kg

DRUGS (3)
  1. CELEBREX [Suspect]
     Indication: ANKYLOSING SPONDYLITIS
     Route: 048
     Dates: start: 20000101
  2. PRILOSEC [Concomitant]
  3. ACETAMINOPHEN [Concomitant]

REACTIONS (5)
  - ARTHRALGIA [None]
  - DRUG INEFFECTIVE [None]
  - FATIGUE [None]
  - NECK PAIN [None]
  - PAIN IN EXTREMITY [None]
